FAERS Safety Report 23655434 (Version 1)
Quarter: 2024Q1

REPORT INFORMATION
  Report Type: Spontaneous
  Country: FR (occurrence: FR)
  Receive Date: 20240320
  Receipt Date: 20240320
  Transmission Date: 20240410
  Serious: Yes (Hospitalization)
  Sender: FDA-Public Use
  Company Number: FR-ABBVIE-5683746

PATIENT
  Age: 66 Year
  Sex: Male

DRUGS (1)
  1. OZURDEX [Suspect]
     Active Substance: DEXAMETHASONE
     Indication: Oedema
     Dosage: TIME INTERVAL: AS NECESSARY
     Route: 050
     Dates: end: 20231114

REACTIONS (4)
  - Hypertonia [Unknown]
  - Ocular hyperaemia [Unknown]
  - Device dislocation [Unknown]
  - Eye pain [Unknown]
